FAERS Safety Report 16837383 (Version 2)
Quarter: 2019Q3

REPORT INFORMATION
  Report Type: Report from Study
  Country: None (occurrence: BR)
  Receive Date: 20190923
  Receipt Date: 20190924
  Transmission Date: 20191005
  Serious: Yes (Hospitalization, Other)
  Sender: FDA-Public Use
  Company Number: BR-ABBVIE-19K-020-2932566-00

PATIENT
  Sex: Female
  Weight: 63 kg

DRUGS (3)
  1. GLIFAGE [Concomitant]
     Active Substance: METFORMIN HYDROCHLORIDE
     Indication: DIABETES MELLITUS
     Route: 048
  2. HUMIRA [Suspect]
     Active Substance: ADALIMUMAB
     Indication: AXIAL SPONDYLOARTHRITIS
     Route: 058
     Dates: start: 20170726, end: 20190805
  3. RUSOVAS [Concomitant]
     Active Substance: ROSUVASTATIN
     Indication: BLOOD CHOLESTEROL INCREASED
     Route: 048
     Dates: start: 201901, end: 201907

REACTIONS (7)
  - Haemorrhage [Recovered/Resolved]
  - Uterine leiomyoma [Recovered/Resolved]
  - Post procedural urine leak [Not Recovered/Not Resolved]
  - Pain [Unknown]
  - Bladder perforation [Not Recovered/Not Resolved]
  - Pyrexia [Unknown]
  - Urinary tract obstruction [Not Recovered/Not Resolved]

NARRATIVE: CASE EVENT DATE: 201902
